FAERS Safety Report 7146145-7 (Version None)
Quarter: 2010Q4

REPORT INFORMATION
  Report Type: 
  Country: None (occurrence: None)
  Receive Date: 20101124
  Receipt Date: 20101112
  Transmission Date: 20110411
  Serious: No
  Sender: FDA-Public Use
  Company Number: SPI201000296

PATIENT

DRUGS (1)
  1. AMITIZA [Suspect]
     Dosage: 24 MCG ; 8 MCG

REACTIONS (2)
  - CHEST PAIN [None]
  - DYSPNOEA [None]
